FAERS Safety Report 8724209 (Version 2)
Quarter: 2012Q4

REPORT INFORMATION
  Report Type: 
  Country: US (occurrence: US)
  Receive Date: 20120815
  Receipt Date: 20120831
  Transmission Date: 20130627
  Serious: Yes (Other)
  Sender: FDA-Public Use
  Company Number: US-PFIZER INC-2012195676

PATIENT
  Age: 68 Year
  Sex: Male

DRUGS (5)
  1. LYRICA [Suspect]
     Dosage: UNK
  2. DULERA [Suspect]
     Indication: CHRONIC OBSTRUCTIVE PULMONARY DISEASE
     Dosage: 2 puffs BID
     Route: 048
     Dates: start: 20111230, end: 20120725
  3. MICARDIS [Concomitant]
     Indication: HYPERTENSION
     Dosage: 80 mg, QD
     Dates: start: 20110121
  4. SINGULAIR [Concomitant]
     Indication: CHRONIC OBSTRUCTIVE PULMONARY DISEASE
     Dosage: 10 mg, QD
     Dates: start: 20090408
  5. XOPENEX [Concomitant]
     Indication: CHRONIC OBSTRUCTIVE PULMONARY DISEASE
     Dosage: 45 ug, (aerosol)
     Dates: start: 20120303

REACTIONS (2)
  - Gastric bypass [Unknown]
  - Alopecia areata [Not Recovered/Not Resolved]
